FAERS Safety Report 22663399 (Version 2)
Quarter: 2024Q3

REPORT INFORMATION
  Report Type: Spontaneous
  Country: US (occurrence: US)
  Receive Date: 20230703
  Receipt Date: 20240711
  Transmission Date: 20241017
  Serious: No
  Sender: HIKMA
  Company Number: US-Hikma Pharmaceuticals USA Inc.-US-H14001-23-01737

PATIENT

DRUGS (1)
  1. ACETAMINOPHEN [Suspect]
     Active Substance: ACETAMINOPHEN
     Indication: Product used for unknown indication
     Dosage: UNKNOWN
     Route: 065

REACTIONS (2)
  - Product dose omission issue [Unknown]
  - Product administration error [Unknown]
